FAERS Safety Report 4603123-7 (Version None)
Quarter: 2005Q1

REPORT INFORMATION
  Report Type: 
  Country: None (occurrence: None)
  Receive Date: 20050307
  Receipt Date: 20050223
  Transmission Date: 20050727
  Serious: Yes (Hospitalization)
  Sender: FDA-Public Use
  Company Number: 2005-BP-03041RO

PATIENT
  Age: 49 Year
  Sex: Male

DRUGS (2)
  1. FUROSEMIDE [Suspect]
     Indication: HYPERTENSION
     Dosage: 160 MG/DAY PO
     Route: 048
  2. CAPTOPRIL [Concomitant]

REACTIONS (12)
  - CARCINOEMBRYONIC ANTIGEN INCREASED [None]
  - COLITIS ISCHAEMIC [None]
  - COLITIS ULCERATIVE [None]
  - COLON NEOPLASM [None]
  - COLONIC STENOSIS [None]
  - CONSTIPATION [None]
  - DIARRHOEA [None]
  - FIBROSIS [None]
  - GASTROINTESTINAL DISORDER [None]
  - GASTROINTESTINAL HAEMORRHAGE [None]
  - TUMOUR NECROSIS [None]
  - TUMOUR ULCERATION [None]
